FAERS Safety Report 4698340-4 (Version None)
Quarter: 2005Q2

REPORT INFORMATION
  Report Type: 
  Country: None (occurrence: None)
  Receive Date: 20050621
  Receipt Date: 20050525
  Transmission Date: 20051028
  Serious: Yes (Hospitalization)
  Sender: FDA-Public Use
  Company Number: BRO-008708

PATIENT
  Age: 66 Year
  Sex: Male

DRUGS (5)
  1. IOPAMIDOL-300 [Suspect]
     Indication: COMPUTERISED TOMOGRAM
     Dosage: IV
     Route: 042
     Dates: start: 20050401, end: 20050401
  2. FOZIRETIC [Concomitant]
  3. PREVISCAN, (FLUINDIONE) [Concomitant]
  4. OGAST, (LANSOPRAZOLE) [Concomitant]
  5. ATORVASTATIN CALCIUM [Concomitant]

REACTIONS (2)
  - HAEMODIALYSIS [None]
  - RENAL FAILURE ACUTE [None]
